FAERS Safety Report 11215298 (Version 1)
Quarter: 2015Q2

REPORT INFORMATION
  Report Type: Spontaneous
  Country: ES (occurrence: None)
  Receive Date: 20150622
  Receipt Date: 20150622
  Transmission Date: 20150821
  Serious: Yes (Other)
  Sender: FDA-Public Use
  Company Number: KAD201506-001732

PATIENT
  Sex: Female

DRUGS (3)
  1. VIEKIRAX (OMBITASVIR, PARITAPREVIR, RITONAVIR) [Suspect]
     Active Substance: OMBITASVIR\PARITAPREVIR\RITONAVIR
     Indication: HEPATITIS C
     Dosage: TABLET, 2 DOSAGE FORMS (ONE IN ONE DAY,) ORAL
     Route: 048
     Dates: start: 20150411
  2. EXVIERA (DASABUVIR) [Suspect]
     Active Substance: DASABUVIR
     Indication: HEPATITIS C
     Dosage: TABLET, 2 DOSAGE FORMS (ONE IN 12 HOURS), HOUR
     Route: 048
     Dates: start: 20150411
  3. RIBAVIRIN (RIBAVIRIN) [Suspect]
     Active Substance: RIBAVIRIN
     Indication: HEPATITIS C

REACTIONS (4)
  - Hepatic failure [None]
  - Portal hypertension [None]
  - Hepatic cancer [None]
  - Varices oesophageal [None]

NARRATIVE: CASE EVENT DATE: 20150511
